FAERS Safety Report 4629190-2 (Version None)
Quarter: 2005Q2

REPORT INFORMATION
  Report Type: 
  Country: None (occurrence: None)
  Receive Date: 20050407
  Receipt Date: 20050224
  Transmission Date: 20051028
  Serious: Yes (Hospitalization, Other)
  Sender: FDA-Public Use
  Company Number: US-AMGEN-US118002

PATIENT
  Sex: Male

DRUGS (5)
  1. PROCRIT [Suspect]
     Indication: HIV INFECTION
     Dates: start: 20040901
  2. KALETRA [Concomitant]
  3. BACTRIM [Concomitant]
  4. VIREAD [Concomitant]
  5. AZITHROMYCIN [Concomitant]

REACTIONS (3)
  - ANAEMIA [None]
  - BONE MARROW DEPRESSION [None]
  - ERYTHEMA INFECTIOSUM [None]
